FAERS Safety Report 14575037 (Version 1)
Quarter: 2018Q1

REPORT INFORMATION
  Report Type: Spontaneous
  Country: US (occurrence: US)
  Receive Date: 20180227
  Receipt Date: 20180227
  Transmission Date: 20180509
  Serious: No
  Sender: FDA-Public Use
  Company Number: US-ROCHE-1990693

PATIENT
  Sex: Female

DRUGS (16)
  1. PANTOPRAZOLE [Concomitant]
     Active Substance: PANTOPRAZOLE
     Dosage: PANTOPRAZOLE TBE
     Route: 065
  2. FLOVENT [Concomitant]
     Active Substance: FLUTICASONE PROPIONATE
     Dosage: 100MCG/B, FLOVENT DISK
     Route: 065
  3. METHYLPREDNISOLON [Concomitant]
     Active Substance: METHYLPREDNISOLONE
     Route: 065
  4. MONTELUKAST [Concomitant]
     Active Substance: MONTELUKAST SODIUM
     Route: 065
  5. FAMOTIDINE. [Concomitant]
     Active Substance: FAMOTIDINE
     Route: 065
  6. HYDROCORTISON [Concomitant]
     Active Substance: HYDROCORTISONE
     Route: 065
  7. SERTRALINE [Concomitant]
     Active Substance: SERTRALINE HYDROCHLORIDE
     Dosage: SERTRALINE H
     Route: 065
  8. CLOPIDOGREL [Concomitant]
     Active Substance: CLOPIDOGREL BISULFATE
     Route: 065
  9. LEVOCETIRIZIN [Concomitant]
     Active Substance: LEVOCETIRIZINE DIHYDROCHLORIDE
     Route: 065
  10. METOPROLOL. [Concomitant]
     Active Substance: METOPROLOL
     Dosage: METOPROLOL S TB2
     Route: 065
  11. XOLAIR [Suspect]
     Active Substance: OMALIZUMAB
     Indication: IDIOPATHIC URTICARIA
     Dosage: 150MG VIAL; 300 MG EVERY 4 WEEKS
     Route: 058
     Dates: start: 20170809
  12. ATORVASTATIN [Concomitant]
     Active Substance: ATORVASTATIN
     Route: 065
  13. FLUTICASONE. [Concomitant]
     Active Substance: FLUTICASONE
     Dosage: 50MCG/AC, SUSPENTION
     Route: 065
  14. BACLOFEN. [Concomitant]
     Active Substance: BACLOFEN
     Route: 065
  15. LISINOPRIL. [Concomitant]
     Active Substance: LISINOPRIL
     Route: 065
  16. PROLIA [Concomitant]
     Active Substance: DENOSUMAB
     Dosage: 60MG/ML, SOLUTION
     Route: 065

REACTIONS (1)
  - Headache [Not Recovered/Not Resolved]
